FAERS Safety Report 8325423 (Version 3)
Quarter: 2015Q1

REPORT INFORMATION
  Report Type: Report from Study
  Country: US (occurrence: US)
  Receive Date: 20120106
  Receipt Date: 20150217
  Transmission Date: 20150721
  Serious: Yes (Death)
  Sender: FDA-Public Use
  Company Number: US-ROCHE-1027839

PATIENT
  Age: 50 Year
  Sex: Male

DRUGS (6)
  1. CYCLOSPORIN [Concomitant]
     Active Substance: CYCLOSPORINE
     Route: 065
  2. TYLENOL [Concomitant]
     Active Substance: ACETAMINOPHEN
  3. PREDNISONE. [Concomitant]
     Active Substance: PREDNISONE
     Route: 065
  4. BENADRYL + DYCLONE MOUTHRINSE [Concomitant]
  5. MUCINEX [Concomitant]
     Active Substance: GUAIFENESIN
  6. RITUXAN [Suspect]
     Active Substance: RITUXIMAB
     Indication: THROMBOTIC MICROANGIOPATHY
     Dosage: 11/JAN/2010, HE RECEIVED LAST DOSE OF RITUXIMAB
     Route: 042
     Dates: start: 20091222

REACTIONS (10)
  - Death [Fatal]
  - Peripheral swelling [Unknown]
  - Dyspnoea [Unknown]
  - Platelet count decreased [Unknown]
  - Off label use [Unknown]
  - Chest pain [Unknown]
  - Abdominal discomfort [Unknown]
  - Bronchitis [Unknown]
  - Oedema peripheral [Unknown]
  - Fatigue [Unknown]

NARRATIVE: CASE EVENT DATE: 201010
